FAERS Safety Report 5692723-1 (Version None)
Quarter: 2008Q2

REPORT INFORMATION
  Report Type: 
  Country: None (occurrence: None)
  Receive Date: 20080401
  Receipt Date: 20080319
  Transmission Date: 20081010
  Serious: Yes (Hospitalization)
  Sender: FDA-Public Use
  Company Number: TRP-00998_2007

PATIENT
  Sex: Female
  Weight: 107.0489 kg

DRUGS (16)
  1. RIBASPHERE [Suspect]
     Indication: HEPATITIS C
     Dosage: (1400 MG QD ORAL)
     Route: 048
     Dates: start: 20070824, end: 20070910
  2. PEG-INTRON/PEGINTERFERON ALFA-2B/SCHERING-PLOUGH 150 UG [Suspect]
     Indication: HEPATITIS C
     Dosage: (150 UG 1X/WEEK SUBCUTANEOUS)
     Route: 058
     Dates: start: 20070824, end: 20070908
  3. BYETTA [Concomitant]
  4. LIDODERM [Concomitant]
  5. MIRENA [Concomitant]
  6. SODIUM CHLORIDE [Concomitant]
  7. KETOPROFEN [Concomitant]
  8. VITAMIN CAP [Concomitant]
  9. COMPAZINE [Concomitant]
  10. BENADRYL ITCH RELIEF [Concomitant]
  11. AMOXICILLIN [Concomitant]
  12. POLYMYXIN [Concomitant]
  13. LEVAQUIN [Concomitant]
  14. MOTRIN [Concomitant]
  15. TYLENOL (CAPLET) [Concomitant]
  16. ASTELIN [Concomitant]

REACTIONS (6)
  - ASTHENIA [None]
  - DYSPNOEA [None]
  - EAR INFECTION [None]
  - EYE INFECTION [None]
  - SINUS TACHYCARDIA [None]
  - WHITE BLOOD CELL COUNT DECREASED [None]
